FAERS Safety Report 25647279 (Version 1)
Quarter: 2025Q3

REPORT INFORMATION
  Report Type: Report from Study
  Country: CN (occurrence: CN)
  Receive Date: 20250806
  Receipt Date: 20250806
  Transmission Date: 20251020
  Serious: Yes (Hospitalization, Other)
  Sender: ELI LILLY AND COMPANY
  Company Number: CN-ELI_LILLY_AND_COMPANY-CN202506013392

PATIENT
  Age: 53 Year
  Sex: Female
  Weight: 64.5 kg

DRUGS (3)
  1. ABEMACICLIB [Suspect]
     Active Substance: ABEMACICLIB
     Indication: Breast cancer
     Dosage: 150 MG, BID
     Route: 048
     Dates: start: 20250611, end: 20250719
  2. MONTMORILLONITE [Suspect]
     Active Substance: MONTMORILLONITE
     Indication: Product used for unknown indication
     Route: 065
  3. LETROZOLE [Concomitant]
     Active Substance: LETROZOLE
     Indication: Product used for unknown indication

REACTIONS (6)
  - Pancreatitis acute [Unknown]
  - Lipids increased [Unknown]
  - Diarrhoea [Unknown]
  - Abdominal distension [Unknown]
  - Gastrointestinal hypermotility [Unknown]
  - Defaecation urgency [Unknown]
